FAERS Safety Report 13390260 (Version 3)
Quarter: 2017Q2

REPORT INFORMATION
  Report Type: Spontaneous
  Country: JP (occurrence: JP)
  Receive Date: 20170331
  Receipt Date: 20170502
  Transmission Date: 20170830
  Serious: Yes (Hospitalization)
  Sender: FDA-Public Use
  Company Number: PHJP2017JP010419

PATIENT
  Sex: Male

DRUGS (1)
  1. EXELON PATCH [Suspect]
     Active Substance: RIVASTIGMINE
     Indication: DEMENTIA ALZHEIMER^S TYPE
     Dosage: 9 MG (PATCH 5, 4.6 MG/24H),QD
     Route: 062
     Dates: start: 201612, end: 201702

REACTIONS (4)
  - Poriomania [Recovered/Resolved]
  - Disease progression [Unknown]
  - Dementia Alzheimer^s type [Unknown]
  - Agitation [Recovered/Resolved]

NARRATIVE: CASE EVENT DATE: 201702
